FAERS Safety Report 9311393 (Version 1)
Quarter: 2013Q2

REPORT INFORMATION
  Report Type: Spontaneous
  Country: US (occurrence: US)
  Receive Date: 20130528
  Receipt Date: 20130528
  Transmission Date: 20140414
  Serious: Yes (Hospitalization)
  Sender: FDA-Public Use
  Company Number: US-BAYER-2013-065046

PATIENT
  Age: 43 Year
  Sex: Female

DRUGS (10)
  1. YASMIN [Suspect]
  2. PROZAC [Concomitant]
     Dosage: 40 MG, DAILY
  3. PRILOSEC [Concomitant]
  4. ZYRTEC [Concomitant]
     Dosage: 10 MG, DAILY
  5. ALBUTEROL [Concomitant]
     Dosage: 2 PUFF(S), AS NEEDED
  6. QVAR [Concomitant]
     Dosage: 2 PUFF(S), AS NEEDED
  7. CIPRO [Concomitant]
  8. MEVACOR [Concomitant]
  9. ERYTHROMYCIN [Concomitant]
  10. AMOXICILLIN [Concomitant]

REACTIONS (1)
  - Pulmonary embolism [None]
